FAERS Safety Report 23459422 (Version 1)
Quarter: 2024Q1

REPORT INFORMATION
  Report Type: Spontaneous
  Country: US (occurrence: US)
  Receive Date: 20240131
  Receipt Date: 20240131
  Transmission Date: 20240409
  Serious: Yes (Death)
  Sender: FDA-Public Use
  Company Number: US-ORPHANEU-2024000456

PATIENT

DRUGS (14)
  1. DACTINOMYCIN [Suspect]
     Active Substance: DACTINOMYCIN
     Indication: Rhabdomyosarcoma
     Dosage: RECEIVED CONSOLIDATIVE THERAPY WITH A TOTAL OF 6 CYCLES OF VAC
  2. DACTINOMYCIN [Suspect]
     Active Substance: DACTINOMYCIN
     Indication: Ovarian Sertoli-Leydig cell tumour
  3. VINCRISTINE [Suspect]
     Active Substance: VINCRISTINE
     Indication: Rhabdomyosarcoma
     Dosage: RECEIVED CONSOLIDATIVE THERAPY WITH A TOTAL OF 6 CYCLES OF VAC
  4. VINCRISTINE [Suspect]
     Active Substance: VINCRISTINE
     Indication: Ovarian Sertoli-Leydig cell tumour
     Dosage: RECEIVED AS VI THERAPY
  5. CYCLOPHOSPHAMIDE [Suspect]
     Active Substance: CYCLOPHOSPHAMIDE
     Indication: Rhabdomyosarcoma
     Dosage: RECEIVED CONSOLIDATIVE THERAPY WITH A TOTAL OF 6 CYCLES OF VAC
  6. CYCLOPHOSPHAMIDE [Suspect]
     Active Substance: CYCLOPHOSPHAMIDE
     Indication: Ovarian Sertoli-Leydig cell tumour
  7. IRINOTECAN [Suspect]
     Active Substance: IRINOTECAN
     Indication: Rhabdomyosarcoma
  8. IRINOTECAN [Suspect]
     Active Substance: IRINOTECAN
     Indication: Ovarian Sertoli-Leydig cell tumour
  9. ETOPOSIDE [Suspect]
     Active Substance: ETOPOSIDE
     Indication: Rhabdomyosarcoma
  10. ETOPOSIDE [Suspect]
     Active Substance: ETOPOSIDE
     Indication: Ovarian Sertoli-Leydig cell tumour
  11. IFOSFAMIDE [Suspect]
     Active Substance: IFOSFAMIDE
     Indication: Rhabdomyosarcoma
  12. IFOSFAMIDE [Suspect]
     Active Substance: IFOSFAMIDE
     Indication: Ovarian Sertoli-Leydig cell tumour
  13. CISPLATIN [Suspect]
     Active Substance: CISPLATIN
     Indication: Rhabdomyosarcoma
  14. CISPLATIN [Suspect]
     Active Substance: CISPLATIN
     Indication: Ovarian Sertoli-Leydig cell tumour

REACTIONS (1)
  - Disease progression [Fatal]
